FAERS Safety Report 9124104 (Version 1)
Quarter: 2013Q1

REPORT INFORMATION
  Report Type: Spontaneous
  Country: US (occurrence: US)
  Receive Date: 20130227
  Receipt Date: 20130227
  Transmission Date: 20140127
  Serious: Yes (Disabling, Other)
  Sender: FDA-Public Use
  Company Number: US-ROCHE-1191965

PATIENT
  Age: 84 Year
  Sex: Female

DRUGS (5)
  1. LUCENTIS [Suspect]
     Indication: MACULAR DEGENERATION
     Route: 050
     Dates: start: 20090324, end: 20120510
  2. ALPRAZOLAM [Concomitant]
     Route: 048
  3. LEXAPRO [Concomitant]
     Route: 048
  4. XALATAN [Concomitant]
     Route: 061
  5. SIMVASTATIN [Concomitant]

REACTIONS (4)
  - Endophthalmitis [Unknown]
  - Blindness [Unknown]
  - Optic nerve infarction [Unknown]
  - Photophobia [Unknown]
